FAERS Safety Report 17148061 (Version 1)
Quarter: 2019Q4

REPORT INFORMATION
  Report Type: Spontaneous
  Country: US (occurrence: US)
  Receive Date: 20191212
  Receipt Date: 20191212
  Transmission Date: 20200122
  Serious: No
  Sender: FDA-Public Use
  Company Number: NVSC2019US011893

PATIENT
  Age: 68 Year
  Sex: Female

DRUGS (1)
  1. MAYZENT [Suspect]
     Active Substance: SIPONIMOD
     Indication: MULTIPLE SCLEROSIS
     Dosage: 0.25 MG, QD
     Route: 048
     Dates: start: 20191008, end: 20191010

REACTIONS (6)
  - Pruritus [Unknown]
  - Tremor [Unknown]
  - Mood altered [Unknown]
  - Fatigue [Unknown]
  - Chills [Unknown]
  - Nausea [Unknown]
